FAERS Safety Report 9837095 (Version 1)
Quarter: 2014Q1

REPORT INFORMATION
  Report Type: Spontaneous
  Country: FI (occurrence: FI)
  Receive Date: 20140123
  Receipt Date: 20140123
  Transmission Date: 20141002
  Serious: Yes (Hospitalization, Other)
  Sender: FDA-Public Use
  Company Number: FI-ELI_LILLY_AND_COMPANY-FI201401004436

PATIENT
  Age: 48 Year
  Sex: Male

DRUGS (21)
  1. CYMBALTA [Suspect]
     Indication: PRODUCT USED FOR UNKNOWN INDICATION
     Dosage: 120 MG, UNKNOWN
     Route: 048
     Dates: start: 20130402, end: 20131103
  2. CYMBALTA [Suspect]
     Dosage: 30 MG, OTHER
     Route: 048
     Dates: start: 20131104, end: 20131124
  3. AMLODIPIN                          /00972401/ [Concomitant]
     Indication: HYPERTENSION
     Dosage: UNK, UNKNOWN
     Route: 065
     Dates: start: 20121111
  4. LOSARTAN [Concomitant]
     Indication: HYPERTENSION
     Dosage: UNK, UNKNOWN
     Route: 065
     Dates: start: 20131021
  5. OMEPRAZOL                          /00661201/ [Concomitant]
     Indication: PROPHYLAXIS
     Dosage: 40 MG, QD
     Route: 065
     Dates: start: 201206
  6. PRIMASPAN [Concomitant]
     Indication: CARDIAC DISORDER
     Dosage: 100 MG, QD
     Dates: start: 200206
  7. PRIMASPAN [Concomitant]
     Indication: CORONARY ARTERY DISEASE
  8. ORMOX [Concomitant]
     Indication: CORONARY ARTERY DISEASE
     Dosage: 10 MG, BID
     Dates: start: 200206
  9. BISOPROLOL [Concomitant]
     Indication: CORONARY ARTERY DISEASE
     Dosage: 5 MG, QD
     Dates: start: 200206
  10. SIMVASTATIN [Concomitant]
     Indication: CORONARY ARTERY DISEASE
     Dosage: 40 MG, QD
     Dates: start: 201206
  11. EMGESAN [Concomitant]
     Indication: MUSCLE SPASMS
     Dosage: 250 MG, QD
     Dates: start: 20130902
  12. NAPROMEX [Concomitant]
     Indication: SCOLIOSIS
     Dosage: 500 MG, BID
     Dates: start: 20130830
  13. BAKLOFEN [Concomitant]
     Indication: MUSCLE SPASMS
     Dosage: 10 MG, OTHER
     Dates: start: 20131025
  14. PARA-TABS [Concomitant]
     Indication: BACK PAIN
     Dosage: 1 G, OTHER
     Dates: start: 201206
  15. SIFROL [Concomitant]
     Indication: RESTLESSNESS
     Dosage: 0.088 MG, QD
     Dates: start: 20131213
  16. KETIPINOR [Concomitant]
     Indication: BIPOLAR DISORDER
     Dosage: 25 MG, BID
     Dates: start: 201206
  17. KETIPINOR [Concomitant]
     Indication: ANXIETY
  18. SEROQUEL [Concomitant]
     Indication: BIPOLAR DISORDER
     Dosage: 300 MG, QD
     Dates: start: 201202
  19. SEROQUEL [Concomitant]
     Indication: ANXIETY
  20. ATARAX                             /00595201/ [Concomitant]
     Indication: PRODUCT USED FOR UNKNOWN INDICATION
     Dosage: 25 MG, OTHER
     Dates: start: 20130926
  21. NORITREN [Concomitant]
     Indication: SCIATICA
     Dosage: 25 MG, QD
     Dates: start: 20131213

REACTIONS (3)
  - Skin scar contracture [Unknown]
  - Skin lesion [Unknown]
  - Hypertension [Unknown]
